FAERS Safety Report 9727708 (Version 4)
Quarter: 2014Q1

REPORT INFORMATION
  Report Type: Spontaneous
  Country: US (occurrence: US)
  Receive Date: 20131203
  Receipt Date: 20140218
  Transmission Date: 20141002
  Serious: No
  Sender: FDA-Public Use
  Company Number: US-GILEAD-2013-0086923

PATIENT
  Age: 49 Year
  Sex: Female

DRUGS (4)
  1. STRIBILD [Suspect]
     Indication: HIV INFECTION
     Dosage: UNK
     Route: 065
     Dates: start: 20130923
  2. VITAMIN D NOS [Concomitant]
  3. FOSAMAX [Concomitant]
  4. PANTOPRAZOLE [Concomitant]

REACTIONS (5)
  - Lethargy [Recovering/Resolving]
  - Circumstance or information capable of leading to medication error [Unknown]
  - Somnolence [Recovering/Resolving]
  - Asthenia [Recovering/Resolving]
  - Fatigue [Recovering/Resolving]
